FAERS Safety Report 10700326 (Version 1)
Quarter: 2015Q1

REPORT INFORMATION
  Report Type: Spontaneous
  Country: CH (occurrence: CH)
  Receive Date: 20150109
  Receipt Date: 20150109
  Transmission Date: 20150721
  Serious: Yes (Other)
  Sender: FDA-Public Use
  Company Number: PHHY2014CH171228

PATIENT
  Age: 62 Year
  Sex: Female

DRUGS (3)
  1. AFINITOR [Suspect]
     Active Substance: EVEROLIMUS
     Indication: BREAST CANCER METASTATIC
     Dosage: 10 MG
     Route: 065
  2. AFINITOR [Suspect]
     Active Substance: EVEROLIMUS
     Dosage: 5 MG
     Route: 065
  3. AFINITOR [Suspect]
     Active Substance: EVEROLIMUS
     Dosage: 10 MG
     Route: 065

REACTIONS (15)
  - Dyspnoea [Unknown]
  - Dry skin [Not Recovered/Not Resolved]
  - Diarrhoea [Unknown]
  - Stomatitis [Unknown]
  - Pruritus [Not Recovered/Not Resolved]
  - Hepatic neoplasm [Unknown]
  - Cough [Unknown]
  - Neoplasm progression [Unknown]
  - Xerosis [Unknown]
  - Fatigue [Unknown]
  - Rash [Not Recovered/Not Resolved]
  - Rash erythematous [Not Recovered/Not Resolved]
  - Jaundice [Unknown]
  - Skin fissures [Not Recovered/Not Resolved]
  - Oedema peripheral [Unknown]
